FAERS Safety Report 13928522 (Version 1)
Quarter: 2017Q3

REPORT INFORMATION
  Report Type: Report from Study
  Country: BR (occurrence: BR)
  Receive Date: 20170901
  Receipt Date: 20170901
  Transmission Date: 20171127
  Serious: Yes (Hospitalization, Other)
  Sender: FDA-Public Use
  Company Number: BR-JNJFOC-20170512594

PATIENT
  Age: 51 Year
  Sex: Female

DRUGS (5)
  1. ARTROLIVE [Concomitant]
     Active Substance: CHONDROITIN SULFATE (BOVINE)\GLUCOSAMINE SULFATE
     Route: 065
  2. REMICADE [Suspect]
     Active Substance: INFLIXIMAB
     Indication: CROHN^S DISEASE
     Route: 042
     Dates: start: 201705
  3. AZATHIOPRINE. [Concomitant]
     Active Substance: AZATHIOPRINE
     Route: 065
  4. REMICADE [Suspect]
     Active Substance: INFLIXIMAB
     Indication: CROHN^S DISEASE
     Dosage: REMICADE TREATMENT IN THE END OF 2013 OR BEGINNING 2014
     Route: 042
     Dates: start: 201312, end: 201702
  5. REMICADE [Suspect]
     Active Substance: INFLIXIMAB
     Indication: CROHN^S DISEASE
     Route: 042
     Dates: start: 2017

REACTIONS (11)
  - Increased upper airway secretion [Not Recovered/Not Resolved]
  - Drug effect decreased [Unknown]
  - Off label use [Unknown]
  - Crohn^s disease [Not Recovered/Not Resolved]
  - Drug intolerance [Unknown]
  - Lacrimation increased [Not Recovered/Not Resolved]
  - Tuberculosis [Recovering/Resolving]
  - Anaemia [Recovering/Resolving]
  - Rhinorrhoea [Not Recovered/Not Resolved]
  - Inappropriate schedule of drug administration [Unknown]
  - Mental disorder [Unknown]

NARRATIVE: CASE EVENT DATE: 201705
